FAERS Safety Report 8333484-7 (Version None)
Quarter: 2012Q2

REPORT INFORMATION
  Report Type: 
  Country: None (occurrence: None)
  Receive Date: 20120503
  Receipt Date: 20101130
  Transmission Date: 20120825
  Serious: No
  Sender: FDA-Public Use
  Company Number: US-TEVA-2010005760

PATIENT
  Sex: Male

DRUGS (1)
  1. NUVIGIL [Suspect]
     Dosage: 250 MILLIGRAM;
     Route: 048
     Dates: start: 20100801

REACTIONS (2)
  - ACNE [None]
  - BLOOD PRESSURE INCREASED [None]
